FAERS Safety Report 9199874 (Version 1)
Quarter: 2013Q1

REPORT INFORMATION
  Report Type: Spontaneous
  Country: US (occurrence: US)
  Receive Date: 20130329
  Receipt Date: 20130329
  Transmission Date: 20140127
  Serious: Yes (Other)
  Sender: FDA-Public Use
  Company Number: US-ELI_LILLY_AND_COMPANY-US201303007148

PATIENT
  Age: 61 Year
  Sex: Male

DRUGS (8)
  1. BYDUREON [Suspect]
     Indication: TYPE 2 DIABETES MELLITUS
     Dosage: 2 MG, WEEKLY (1/W)
     Route: 058
     Dates: start: 201303
  2. GLIMEPIRIDE [Concomitant]
     Route: 048
  3. METFORMIN [Concomitant]
     Route: 048
  4. LISINOPRIL                              /USA/ [Concomitant]
     Route: 048
  5. CRESTOR [Concomitant]
     Route: 048
  6. SYMBICORT [Concomitant]
     Route: 055
  7. AFRIN                              /00070001/ [Concomitant]
     Route: 045
  8. ALEVE [Concomitant]
     Route: 048

REACTIONS (1)
  - Pancreatic mass [Unknown]
